FAERS Safety Report 15300357 (Version 1)
Quarter: 2018Q3

REPORT INFORMATION
  Report Type: Spontaneous
  Country: US (occurrence: US)
  Receive Date: 20180821
  Receipt Date: 20180821
  Transmission Date: 20181010
  Serious: No
  Sender: FDA-Public Use
  Company Number: US-ASTRAZENECA-2018SF04286

PATIENT
  Age: 78 Year
  Sex: Male
  Weight: 67.6 kg

DRUGS (1)
  1. TUDORZA PRESSAIR [Suspect]
     Active Substance: ACLIDINIUM BROMIDE
     Indication: CHRONIC OBSTRUCTIVE PULMONARY DISEASE
     Route: 055
     Dates: start: 2016

REACTIONS (8)
  - Memory impairment [Unknown]
  - Dysgeusia [Unknown]
  - Device issue [Unknown]
  - Drug dose omission [Unknown]
  - Respiratory rate decreased [Unknown]
  - Back disorder [Unknown]
  - Intentional product misuse [Unknown]
  - Body height decreased [Unknown]

NARRATIVE: CASE EVENT DATE: 2015
